FAERS Safety Report 9101592 (Version 1)
Quarter: 2013Q1

REPORT INFORMATION
  Report Type: Spontaneous
  Country: GB (occurrence: GB)
  Receive Date: 20130215
  Receipt Date: 20130215
  Transmission Date: 20140127
  Serious: Yes (Hospitalization)
  Sender: FDA-Public Use
  Company Number: GB-PFIZER INC-2013058805

PATIENT
  Sex: Female

DRUGS (1)
  1. RAPAMUNE [Suspect]

REACTIONS (2)
  - Dysphagia [Unknown]
  - Choking [Unknown]
